FAERS Safety Report 4951283-0 (Version None)
Quarter: 2006Q1

REPORT INFORMATION
  Report Type: 
  Country: None (occurrence: None)
  Receive Date: 20060323
  Receipt Date: 20060303
  Transmission Date: 20060701
  Serious: Yes (Disabling)
  Sender: FDA-Public Use
  Company Number: US-BOEHRINGER INGELHEIM PHARMACEUTICALS, INC.-2006-BP-02452BP

PATIENT
  Age: 79 Year
  Sex: Male

DRUGS (4)
  1. FLOMAX [Suspect]
     Indication: BENIGN PROSTATIC HYPERPLASIA
     Route: 048
  2. AMIODARONE HCL [Concomitant]
  3. LANOXIN [Concomitant]
  4. ASPIRIN [Concomitant]

REACTIONS (4)
  - FLAT ANTERIOR CHAMBER OF EYE [None]
  - IRIS DISORDER [None]
  - MACULAR OEDEMA [None]
  - MACULOPATHY [None]
